FAERS Safety Report 20790959 (Version 1)
Quarter: 2022Q2

REPORT INFORMATION
  Report Type: Spontaneous
  Country: JP (occurrence: None)
  Receive Date: 20220505
  Receipt Date: 20220505
  Transmission Date: 20220721
  Serious: Yes (Hospitalization, Disabling)
  Sender: FDA-Public Use
  Company Number: 2022A166620

PATIENT
  Age: 100 Year
  Sex: Female

DRUGS (2)
  1. DAPAGLIFLOZIN [Suspect]
     Active Substance: DAPAGLIFLOZIN
     Indication: Cardiac failure
     Dosage: DOSE UNKNOWN
     Route: 048
     Dates: start: 20220407
  2. UNSPECIFIED INGREDIENT [Concomitant]
     Active Substance: UNSPECIFIED INGREDIENT
     Dosage: DOSE UNKNOWN
     Route: 065
     Dates: start: 20220407

REACTIONS (3)
  - Cerebral infarction [Unknown]
  - Fall [Unknown]
  - Fracture [Unknown]

NARRATIVE: CASE EVENT DATE: 20220418
